FAERS Safety Report 8294465-5 (Version None)
Quarter: 2012Q2

REPORT INFORMATION
  Report Type: 
  Country: None (occurrence: None)
  Receive Date: 20120418
  Receipt Date: 20120413
  Transmission Date: 20120825
  Serious: Yes (Other)
  Sender: FDA-Public Use
  Company Number: PHHY2012US031498

PATIENT
  Age: 61 Year
  Sex: Male

DRUGS (1)
  1. SIMVASTATIN [Suspect]

REACTIONS (7)
  - TENDON PAIN [None]
  - WEIGHT BEARING DIFFICULTY [None]
  - ECCHYMOSIS [None]
  - JOINT SWELLING [None]
  - ARTHRALGIA [None]
  - FALL [None]
  - TENDON RUPTURE [None]
